FAERS Safety Report 16289833 (Version 1)
Quarter: 2019Q2

REPORT INFORMATION
  Report Type: Spontaneous
  Country: US (occurrence: US)
  Receive Date: 20190404
  Receipt Date: 20190404
  Transmission Date: 20190711
  Serious: No
  Sender: FDA-Public Use
  Company Number: None

PATIENT
  Age: 83 Year
  Sex: Female

DRUGS (4)
  1. FUROSEMIDE. [Concomitant]
     Active Substance: FUROSEMIDE
  2. TADALAFIL TAB 20 MG [Suspect]
     Active Substance: TADALAFIL
     Dates: start: 20190319
  3. MAGNESIUM OXIDE. [Concomitant]
     Active Substance: MAGNESIUM OXIDE
  4. ELIQUIS [Concomitant]
     Active Substance: APIXABAN

REACTIONS (4)
  - Dizziness [None]
  - Tremor [None]
  - Loss of personal independence in daily activities [None]
  - Headache [None]

NARRATIVE: CASE EVENT DATE: 20190403
